FAERS Safety Report 18480494 (Version 1)
Quarter: 2020Q4

REPORT INFORMATION
  Report Type: Spontaneous
  Country: US (occurrence: US)
  Receive Date: 20201109
  Receipt Date: 20201109
  Transmission Date: 20210114
  Serious: No
  Sender: FDA-Public Use
  Company Number: None

PATIENT

DRUGS (2)
  1. POTASSIUM CHLORIDE. [Suspect]
     Active Substance: POTASSIUM CHLORIDE
     Indication: PERIPHERAL SWELLING
  2. FUROSEMIDE 40 MG [Suspect]
     Active Substance: FUROSEMIDE
     Indication: PERIPHERAL SWELLING

REACTIONS (4)
  - Urinary tract disorder [None]
  - Dyspnoea [None]
  - Syncope [None]
  - Dry mouth [None]

NARRATIVE: CASE EVENT DATE: 20200511
